FAERS Safety Report 4338245-1 (Version None)
Quarter: 2004Q2

REPORT INFORMATION
  Report Type: 
  Country: None (occurrence: None)
  Receive Date: 20040409
  Receipt Date: 20040326
  Transmission Date: 20050107
  Serious: Yes (Hospitalization)
  Sender: FDA-Public Use
  Company Number: FR-JNJFOC-20040306053

PATIENT
  Age: 65 Year
  Sex: Male

DRUGS (4)
  1. REMICADE [Suspect]
     Indication: ANKYLOSING SPONDYLITIS
     Dosage: INTRAVENOUS
     Route: 042
     Dates: start: 20040326
  2. TRAMADOL HCL [Concomitant]
  3. RIVOTRIL (CLONAZEPAM) DROPS [Concomitant]
  4. ZESTORETIC (PRINZIDE) TABLETS [Concomitant]

REACTIONS (3)
  - COLONIC POLYP [None]
  - DIVERTICULUM [None]
  - GASTRITIS [None]
